FAERS Safety Report 4548255-7 (Version None)
Quarter: 2005Q1

REPORT INFORMATION
  Report Type: 
  Country: None (occurrence: None)
  Receive Date: 20050106
  Receipt Date: 20050106
  Transmission Date: 20050727
  Serious: No
  Sender: FDA-Public Use
  Company Number: None

PATIENT
  Sex: Male
  Weight: 72.5755 kg

DRUGS (2)
  1. CADUET [Suspect]
     Indication: HYPERLIPIDAEMIA
     Dosage: 10/5MG PO
     Route: 048
     Dates: start: 20041001, end: 20041223
  2. CADUET [Suspect]
     Indication: HYPERTENSION
     Dosage: 10/5MG PO
     Route: 048
     Dates: start: 20041001, end: 20041223

REACTIONS (1)
  - GINGIVAL BLEEDING [None]
